FAERS Safety Report 6518664-5 (Version None)
Quarter: 2009Q4

REPORT INFORMATION
  Report Type: 
  Country: None (occurrence: None)
  Receive Date: 20091228
  Receipt Date: 20091217
  Transmission Date: 20100525
  Serious: Yes (Death)
  Sender: FDA-Public Use
  Company Number: US-ROCHE-672758

PATIENT
  Sex: Female
  Weight: 87.1 kg

DRUGS (1)
  1. CAPECITABINE [Suspect]
     Indication: BREAST CANCER
     Route: 048
     Dates: start: 20090714, end: 20091023

REACTIONS (2)
  - MALIGNANT NEOPLASM PROGRESSION [None]
  - RESPIRATORY FAILURE [None]
